FAERS Safety Report 10072555 (Version 1)
Quarter: 2014Q2

REPORT INFORMATION
  Report Type: Spontaneous
  Country: US (occurrence: None)
  Receive Date: 20140409
  Receipt Date: 20140409
  Transmission Date: 20141212
  Serious: Yes (Other)
  Sender: FDA-Public Use
  Company Number: USW201403-000062

PATIENT
  Age: 62 Year
  Sex: Male

DRUGS (2)
  1. APOKYN [Suspect]
     Indication: PARKINSON^S DISEASE
     Dosage: 0.4 MILILITRE, PRN, SUCUTANEOUS
     Route: 058
     Dates: start: 20140312
  2. LASIX (FUROSEMIDE) (FUROSEMIDE) [Concomitant]

REACTIONS (3)
  - Dehydration [None]
  - Hypotension [None]
  - Loss of consciousness [None]
